FAERS Safety Report 7109817-6 (Version None)
Quarter: 2010Q4

REPORT INFORMATION
  Report Type: 
  Country: None (occurrence: None)
  Receive Date: 20101118
  Receipt Date: 20101105
  Transmission Date: 20110411
  Serious: Yes (Other)
  Sender: FDA-Public Use
  Company Number: PHHY2010BG74408

PATIENT
  Age: 70 Year
  Sex: Female

DRUGS (2)
  1. ACLASTA [Suspect]
     Indication: OSTEOPOROSIS
     Dosage: UNK
     Dates: start: 20101005
  2. CALCIUM WITH VITAMIN D [Concomitant]

REACTIONS (6)
  - ASTHENIA [None]
  - PAIN [None]
  - PYREXIA [None]
  - TACHYCARDIA [None]
  - THIRST [None]
  - VOMITING [None]
